FAERS Safety Report 4455473-5 (Version None)
Quarter: 2004Q3

REPORT INFORMATION
  Report Type: 
  Country: None (occurrence: None)
  Receive Date: 20040917
  Receipt Date: 20040830
  Transmission Date: 20050211
  Serious: Yes (Other)
  Sender: FDA-Public Use
  Company Number: US_0408105084

PATIENT
  Age: 16 Year
  Sex: Female

DRUGS (7)
  1. VINCRISTINE SULFATE [Suspect]
     Indication: HODGKIN'S DISEASE MIXED CELLULARITY STAGE UNSPECIFIED
     Dates: start: 20020101, end: 20020801
  2. BLEOMYCIN [Concomitant]
  3. ETOPOSIDE [Concomitant]
  4. DOXORUBICIN [Concomitant]
  5. CYCLOPHOSPHAMIDE [Concomitant]
  6. PROCARBAZINE [Concomitant]
  7. PREDNISONE [Concomitant]

REACTIONS (5)
  - CRYPTOCOCCOSIS [None]
  - LYMPHOPENIA [None]
  - NEUTROPENIA [None]
  - SUBCUTANEOUS ABSCESS [None]
  - WEIGHT INCREASED [None]
